FAERS Safety Report 9005459 (Version 1)
Quarter: 2013Q1

REPORT INFORMATION
  Report Type: Spontaneous
  Country: US (occurrence: US)
  Receive Date: 20130109
  Receipt Date: 20130109
  Transmission Date: 20140127
  Serious: Yes (Congenital Anomaly)
  Sender: FDA-Public Use
  Company Number: US-009507513-1301USA001504

PATIENT
  Sex: Male

DRUGS (2)
  1. SINGULAIR [Suspect]
     Indication: BRONCHITIS
     Dosage: 10 MG, DAILY
     Route: 048
  2. KETEK [Suspect]
     Indication: ASTHMA
     Dosage: 800 MG, DAILY
     Route: 048

REACTIONS (1)
  - Limb reduction defect [Unknown]
